FAERS Safety Report 4820858-1 (Version None)
Quarter: 2005Q4

REPORT INFORMATION
  Report Type: 
  Country: None (occurrence: None)
  Receive Date: 20051104
  Receipt Date: 20051028
  Transmission Date: 20060501
  Serious: Yes (Hospitalization)
  Sender: FDA-Public Use
  Company Number: AT-ABBOTT-05P-009-0315759-00

PATIENT
  Sex: Female
  Weight: 43 kg

DRUGS (9)
  1. HUMIRA 40 MG/ 0.8 ML PRE-FILLED SYRINGE [Suspect]
     Indication: RHEUMATOID ARTHRITIS
     Route: 058
     Dates: start: 20050501
  2. PREDNISOLONE [Concomitant]
     Indication: DRUG USE FOR UNKNOWN INDICATION
     Route: 048
  3. PANTOPRAZOLE [Concomitant]
     Indication: ULCER
  4. ALENDRONATE SODIUM [Concomitant]
     Indication: OSTEOPOROSIS
  5. AMITRIPTYLINE HCL [Concomitant]
     Indication: DEPRESSION
  6. BROTIZOLAM [Concomitant]
     Indication: SEDATIVE THERAPY
  7. MADOPAR [Concomitant]
     Indication: PARKINSON'S DISEASE
  8. CIPRALEX [Concomitant]
     Indication: DEPRESSION
  9. METHOTREXATE [Concomitant]
     Indication: RHEUMATOID ARTHRITIS
     Route: 048
     Dates: start: 20040101

REACTIONS (1)
  - PEMPHIGUS [None]
